FAERS Safety Report 25777861 (Version 1)
Quarter: 2025Q3

REPORT INFORMATION
  Report Type: Spontaneous
  Country: US (occurrence: US)
  Receive Date: 20250909
  Receipt Date: 20250909
  Transmission Date: 20251020
  Serious: Yes (Other)
  Sender: ACCORD
  Company Number: US-MLMSERVICE-20240408-PI009134-00057-1

PATIENT
  Age: 57 Year
  Sex: Female

DRUGS (2)
  1. ATORVASTATIN [Suspect]
     Active Substance: ATORVASTATIN
     Indication: Metabolic syndrome
  2. EMPAGLIFLOZIN [Suspect]
     Active Substance: EMPAGLIFLOZIN
     Indication: Metabolic syndrome

REACTIONS (3)
  - Henoch-Schonlein purpura [Unknown]
  - Glomerulonephritis [Unknown]
  - Off label use [Unknown]
